FAERS Safety Report 5613979-7 (Version None)
Quarter: 2008Q1

REPORT INFORMATION
  Report Type: 
  Country: None (occurrence: None)
  Receive Date: 20080205
  Receipt Date: 20080130
  Transmission Date: 20080703
  Serious: Yes (Hospitalization)
  Sender: FDA-Public Use
  Company Number: JP-ASTRAZENECA-2007AP07946

PATIENT
  Age: 33920 Day
  Sex: Female
  Weight: 37 kg

DRUGS (8)
  1. DIPRIVAN [Suspect]
     Indication: INDUCTION AND MAINTENANCE OF ANAESTHESIA
     Dosage: TARGET BLOOD CONCENTRATION OF DIPRIVAN:1.5-2.5 MG/KG/HR
     Route: 042
     Dates: start: 20071211, end: 20071211
  2. CEFAMEZIN [Suspect]
     Route: 042
     Dates: start: 20071211, end: 20071211
  3. FENTANYL [Concomitant]
     Indication: INDUCTION OF ANAESTHESIA
     Route: 042
     Dates: start: 20071211, end: 20071211
  4. FENTANYL [Concomitant]
     Indication: MAINTENANCE OF ANAESTHESIA
     Route: 042
     Dates: start: 20071211, end: 20071211
  5. FENTANYL [Concomitant]
     Route: 042
     Dates: start: 20071211, end: 20071211
  6. FENTANYL [Concomitant]
     Route: 042
     Dates: start: 20071211, end: 20071211
  7. NAROPIN [Concomitant]
     Indication: MAINTENANCE OF ANAESTHESIA
     Route: 053
     Dates: start: 20071211, end: 20071211
  8. EPHEDRIN [Concomitant]
     Indication: MAINTENANCE OF ANAESTHESIA
     Route: 042
     Dates: start: 20071211, end: 20071211

REACTIONS (1)
  - HEPATIC FUNCTION ABNORMAL [None]
